FAERS Safety Report 8866502 (Version 4)
Quarter: 2012Q4

REPORT INFORMATION
  Report Type: 
  Country: JP (occurrence: JP)
  Receive Date: 20121025
  Receipt Date: 20121029
  Transmission Date: 20130627
  Serious: Yes (Death)
  Sender: FDA-Public Use
  Company Number: JP-B.I. PHARMACEUTICALS,INC./RIDGEFIELD-2012-BP-26296NB

PATIENT
  Age: 79 Year
  Sex: Male
  Weight: 76.2 kg

DRUGS (14)
  1. PRADAXA [Suspect]
     Indication: ATRIAL FIBRILLATION
     Dosage: 300 mg
     Route: 048
     Dates: start: 20120409, end: 20120726
  2. PRADAXA [Suspect]
     Dosage: 220 mg
     Route: 048
     Dates: start: 20120727
  3. MICARDIS [Concomitant]
     Indication: HYPERTENSION
     Dosage: 80 mg
     Route: 048
     Dates: start: 20120401
  4. OPTIRAN [Concomitant]
     Indication: LUMBAR SPINAL STENOSIS
     Dosage: 15 mcg
     Route: 048
     Dates: start: 20120412
  5. MAGLAX [Concomitant]
     Indication: CONSTIPATION
     Dosage: 990 mg
     Route: 048
     Dates: start: 20120817
  6. SUNRYTHM [Concomitant]
     Indication: ATRIAL FIBRILLATION
     Dosage: 150 mg
     Route: 048
     Dates: start: 20111105
  7. URSO [Concomitant]
     Indication: CHOLELITHIASIS
     Dosage: 300 mg
     Route: 048
     Dates: start: 20051224
  8. ADALAT-CR [Concomitant]
     Indication: HYPERTENSION
     Dosage: 40 mg
     Route: 048
     Dates: start: 20080524
  9. BETAMAC [Concomitant]
     Indication: DEPRESSION
     Dosage: 150 mg
     Route: 048
     Dates: start: 20051224
  10. DEPAS [Concomitant]
     Indication: DEPRESSION
     Dosage: 1.5 mg
     Route: 048
     Dates: start: 20051224
  11. CALBLOCK [Concomitant]
     Indication: HYPERTENSION
     Dosage: 16 mg
     Route: 048
     Dates: start: 20071009
  12. CARDENALIN [Concomitant]
     Indication: HYPERTENSION
     Dosage: 2 mg
     Route: 048
     Dates: start: 20120521
  13. SENNOSIDE [Concomitant]
     Indication: CONSTIPATION
     Dosage: 12 mg
     Route: 048
     Dates: start: 20120817
  14. KAMPO [Concomitant]
     Indication: HEADACHE
     Dosage: 7.5 g
     Route: 048
     Dates: start: 20120824

REACTIONS (2)
  - Asphyxia [Fatal]
  - Epistaxis [Fatal]
